FAERS Safety Report 8062681-3 (Version None)
Quarter: 2012Q1

REPORT INFORMATION
  Report Type: 
  Country: None (occurrence: None)
  Receive Date: 20120123
  Receipt Date: 20120117
  Transmission Date: 20120608
  Serious: Yes (Hospitalization, Other)
  Sender: FDA-Public Use
  Company Number: US-SANOFI-AVENTIS-2012SA002188

PATIENT
  Age: 50 Year
  Sex: Female

DRUGS (1)
  1. APIDRA [Suspect]
     Route: 058
     Dates: start: 20090101

REACTIONS (4)
  - DIABETIC KETOACIDOSIS [None]
  - PRODUCT QUALITY ISSUE [None]
  - BLOOD GLUCOSE INCREASED [None]
  - DEHYDRATION [None]
